FAERS Safety Report 10898667 (Version 1)
Quarter: 2015Q1

REPORT INFORMATION
  Report Type: Spontaneous
  Country: US (occurrence: None)
  Receive Date: 20150303
  Receipt Date: 20150303
  Transmission Date: 20150721
  Serious: No
  Sender: FDA-Public Use
  Company Number: None

PATIENT
  Age: 48 Year
  Sex: Female
  Weight: 81.65 kg

DRUGS (4)
  1. NATROL PROBIOTICS [Concomitant]
  2. ALPRAZOLAM. [Suspect]
     Active Substance: ALPRAZOLAM
     Indication: PANIC DISORDER
     Dosage: 1 PILL
     Route: 048
     Dates: start: 20150219, end: 20150225
  3. ALPRAZOLAM. [Suspect]
     Active Substance: ALPRAZOLAM
     Indication: POST-TRAUMATIC STRESS DISORDER
     Dosage: 1 PILL
     Route: 048
     Dates: start: 20150219, end: 20150225
  4. ALPRAZOLAM. [Concomitant]
     Active Substance: ALPRAZOLAM

REACTIONS (6)
  - Anxiety [None]
  - Product substitution issue [None]
  - Chest pain [None]
  - Product quality issue [None]
  - Malaise [None]
  - Panic attack [None]

NARRATIVE: CASE EVENT DATE: 20150224
